FAERS Safety Report 4322508-X (Version None)
Quarter: 2004Q1

REPORT INFORMATION
  Report Type: 
  Country: None (occurrence: None)
  Receive Date: 20040319
  Receipt Date: 20040303
  Transmission Date: 20041129
  Serious: Yes (Hospitalization)
  Sender: FDA-Public Use
  Company Number: F01200400433

PATIENT
  Age: 82 Year
  Sex: Female

DRUGS (4)
  1. (FONDAPARINUX SODIUM) - SOLUTION - UNIT DOSE: UNKNOWN [Suspect]
     Indication: BONE OPERATION
     Dosage: 2.5 MG SUBCUTANEOUS
     Route: 058
     Dates: start: 20040128, end: 20040213
  2. ACERBON (LISINOPRIL) [Concomitant]
  3. ALLOPURINOL [Concomitant]
  4. VIOXX [Concomitant]

REACTIONS (6)
  - ANAEMIA [None]
  - GENERAL PHYSICAL HEALTH DETERIORATION [None]
  - NAUSEA [None]
  - ORTHOSTATIC HYPOTENSION [None]
  - SYNCOPE [None]
  - VOMITING [None]
